FAERS Safety Report 23166201 (Version 1)
Quarter: 2023Q4

REPORT INFORMATION
  Report Type: Spontaneous
  Country: US (occurrence: None)
  Receive Date: 20231109
  Receipt Date: 20231109
  Transmission Date: 20240109
  Serious: Yes (Hospitalization)
  Sender: FDA-Public Use
  Company Number: None

PATIENT
  Age: 28 Year
  Sex: Female
  Weight: 63.5 kg

DRUGS (6)
  1. CYCLOPHOSPHAMIDE [Suspect]
     Active Substance: CYCLOPHOSPHAMIDE
     Dates: end: 20231012
  2. CYTARABINE [Suspect]
     Active Substance: CYTARABINE
     Dates: end: 20231010
  3. DEXAMETHASONE [Suspect]
     Active Substance: DEXAMETHASONE
     Dates: end: 20231023
  4. DOXORUBICIN HYDROCHLORIDE [Suspect]
     Active Substance: DOXORUBICIN HYDROCHLORIDE
     Dates: end: 20231013
  5. MESNA [Suspect]
     Active Substance: MESNA
     Dates: end: 20231012
  6. VINCRISTINE SULFATE [Suspect]
     Active Substance: VINCRISTINE SULFATE
     Dates: end: 20231020

REACTIONS (5)
  - Infusion site cellulitis [None]
  - Pyrexia [None]
  - Infusion site pain [None]
  - Infusion site swelling [None]
  - White blood cell count increased [None]

NARRATIVE: CASE EVENT DATE: 20231031
